FAERS Safety Report 6367334-5 (Version None)
Quarter: 2009Q3

REPORT INFORMATION
  Report Type: 
  Country: None (occurrence: None)
  Receive Date: 20090921
  Receipt Date: 20090918
  Transmission Date: 20100115
  Serious: Yes (Death)
  Sender: FDA-Public Use
  Company Number: RU-ROCHE-600066

PATIENT
  Sex: Female
  Weight: 78 kg

DRUGS (6)
  1. METHOXY POLYETHYLENE GLYCOL-EPOETIN BETA [Suspect]
     Dosage: DOSAGE FORM REPORTED AS PFS (PRE-FILLED SYRINGE)
     Route: 042
     Dates: start: 20080506, end: 20081114
  2. ALFACALCIDOL [Concomitant]
     Dates: start: 20070413
  3. EGILOK [Concomitant]
     Dates: start: 20070413
  4. ACCUPRO [Concomitant]
     Dates: start: 20070413
  5. CORDAFLEX [Concomitant]
     Dosage: DRUG NAME REPORTED AS ^CORDAFLEX RETARD^
     Dates: start: 20031010
  6. FUROSEMID [Concomitant]
     Dates: start: 20080229

REACTIONS (2)
  - DEATH [None]
  - SUDDEN DEATH [None]
